FAERS Safety Report 5481121-1 (Version None)
Quarter: 2007Q4

REPORT INFORMATION
  Report Type: 
  Country: None (occurrence: None)
  Receive Date: 20071004
  Receipt Date: 20070924
  Transmission Date: 20080405
  Serious: Yes (Hospitalization, Other)
  Sender: FDA-Public Use
  Company Number: 430032M07USA

PATIENT
  Age: 58 Year
  Sex: Female
  Weight: 77.1115 kg

DRUGS (11)
  1. NOVANTRONE [Suspect]
     Indication: MULTIPLE SCLEROSIS
     Dosage: 1 IN 3 MONTHS, INTRAVENOUS (NOT OTHERWISE SPECIFIED)
     Route: 042
     Dates: start: 20020807, end: 20070227
  2. REBIF [Suspect]
     Indication: MULTIPLE SCLEROSIS
     Dosage: 44 MCG, 3 IN 1 WEEKS, SUBCUTANEOUS
     Route: 058
     Dates: start: 20030522
  3. BACLOFEN [Concomitant]
  4. CALCIUM W/VITAMIN D (VITACAL) [Concomitant]
  5. CENTRUM SILVER (CENTRUM SILVER) [Concomitant]
  6. COREG CR (CARVEDILOL) [Concomitant]
  7. DIOVAN [Concomitant]
  8. NEURONTIN [Concomitant]
  9. KLOR-CON [Concomitant]
  10. LASIX [Concomitant]
  11. FOSAMAX [Concomitant]

REACTIONS (5)
  - CARDIAC FAILURE CONGESTIVE [None]
  - CARDIOMYOPATHY [None]
  - HYPOTENSION [None]
  - URINARY TRACT INFECTION [None]
  - VIRAL INFECTION [None]
